FAERS Safety Report 9171652 (Version 1)
Quarter: 2013Q1

REPORT INFORMATION
  Report Type: Spontaneous
  Country: US (occurrence: US)
  Receive Date: 20130319
  Receipt Date: 20130319
  Transmission Date: 20140127
  Serious: Yes (Hospitalization)
  Sender: FDA-Public Use
  Company Number: US-BAYER-2013-033258

PATIENT
  Age: 65 Year
  Sex: Male

DRUGS (2)
  1. ULTRAVIST [Suspect]
     Indication: COMPUTERISED TOMOGRAM ABDOMEN
     Dosage: 100 ML, ONCE
     Route: 042
     Dates: start: 20130312, end: 20130312
  2. ULTRAVIST [Suspect]
     Indication: ABDOMINAL PAIN UPPER

REACTIONS (3)
  - Hypotonia [None]
  - Hypoaesthesia [None]
  - Pruritus generalised [None]
